FAERS Safety Report 7693571-3 (Version None)
Quarter: 2011Q3

REPORT INFORMATION
  Report Type: 
  Country: None (occurrence: None)
  Receive Date: 20110819
  Receipt Date: 20110809
  Transmission Date: 20111222
  Serious: Yes (Other)
  Sender: FDA-Public Use
  Company Number: PHHY2011US72618

PATIENT
  Age: 66 Year
  Sex: Female

DRUGS (3)
  1. SUCRALFATE [Concomitant]
     Dosage: UNK
  2. ALENDRONATE SODIUM [Suspect]
     Indication: OSTEOPOROSIS
     Dosage: 70 MG, QW
  3. ESOMEPRAZOLE MAGNESIUM [Concomitant]
     Dosage: UNK

REACTIONS (3)
  - FOOT FRACTURE [None]
  - FEMUR FRACTURE [None]
  - PAIN IN EXTREMITY [None]
